FAERS Safety Report 18115433 (Version 1)
Quarter: 2020Q3

REPORT INFORMATION
  Report Type: Report from Study
  Country: MX (occurrence: MX)
  Receive Date: 20200805
  Receipt Date: 20200805
  Transmission Date: 20201103
  Serious: Yes (Hospitalization, Other)
  Sender: FDA-Public Use
  Company Number: MX-JNJFOC-20200438954

PATIENT
  Age: 69 Year
  Sex: Male
  Weight: 60 kg

DRUGS (1)
  1. SIMPONI [Suspect]
     Active Substance: GOLIMUMAB
     Indication: ANKYLOSING SPONDYLITIS
     Route: 058
     Dates: start: 20160910, end: 20191204

REACTIONS (7)
  - Hospitalisation [Unknown]
  - Depression [Unknown]
  - Dizziness [Unknown]
  - Influenza [Unknown]
  - Ankylosing spondylitis [Unknown]
  - Anxiety [Unknown]
  - Immune system disorder [Unknown]

NARRATIVE: CASE EVENT DATE: 201912
